FAERS Safety Report 20307186 (Version 1)
Quarter: 2022Q1

REPORT INFORMATION
  Report Type: Spontaneous
  Country: US (occurrence: US)
  Receive Date: 20220107
  Receipt Date: 20220107
  Transmission Date: 20220423
  Serious: Yes (Other)
  Sender: FDA-Public Use
  Company Number: US-CELLTRION INC.-2021US017987

PATIENT

DRUGS (2)
  1. TRUXIMA [Suspect]
     Active Substance: RITUXIMAB-ABBS
     Indication: Nephritic syndrome
     Dosage: UNK
  2. TRUXIMA [Suspect]
     Active Substance: RITUXIMAB-ABBS
     Indication: Vasculitis necrotising
     Dosage: 860 MG Q W 1X DOSE 3
     Dates: start: 20211221

REACTIONS (3)
  - Glomerulonephritis rapidly progressive [Unknown]
  - Vasculitis necrotising [Unknown]
  - Off label use [Unknown]
